FAERS Safety Report 12582449 (Version 1)
Quarter: 2016Q3

REPORT INFORMATION
  Report Type: Spontaneous
  Country: US (occurrence: None)
  Receive Date: 20160721
  Receipt Date: 20160721
  Transmission Date: 20161109
  Serious: No
  Sender: FDA-Public Use
  Company Number: None

PATIENT
  Sex: Male
  Weight: 95.26 kg

DRUGS (3)
  1. GLEEVEC [Suspect]
     Active Substance: IMATINIB MESYLATE
     Indication: TYROSINE KINASE MUTATION ASSAY
     Dosage: 400 MG 1 TAB DAILY PO
     Route: 048
     Dates: start: 20130417
  2. GLEEVEC [Suspect]
     Active Substance: IMATINIB MESYLATE
     Indication: LABORATORY TEST ABNORMAL
     Dosage: 400 MG 1 TAB DAILY PO
     Route: 048
     Dates: start: 20130417
  3. GLEEVEC [Suspect]
     Active Substance: IMATINIB MESYLATE
     Indication: CHRONIC MYELOID LEUKAEMIA
     Dosage: 400 MG 1 TAB DAILY PO
     Route: 048
     Dates: start: 20130417

REACTIONS (2)
  - Dizziness [None]
  - Haemoglobin decreased [None]
